FAERS Safety Report 9280515 (Version 1)
Quarter: 2013Q2

REPORT INFORMATION
  Report Type: Spontaneous
  Country: GB (occurrence: None)
  Receive Date: 20130503
  Receipt Date: 20130503
  Transmission Date: 20140414
  Serious: Yes (Hospitalization)
  Sender: FDA-Public Use
  Company Number: AG-2013-1516

PATIENT
  Age: 73 Year
  Sex: Male

DRUGS (2)
  1. CHLORAMBUCIL (CHLORAMBUCIL) (UNKNOWN) [Suspect]
     Indication: CHRONIC LYMPHOCYTIC LEUKAEMIA
     Dosage: 140MG CYCLIC (140 MILLIGRAM, 1 CYCLICAL)
     Route: 048
     Dates: start: 20121213
  2. OFATUMUMAB [Suspect]
     Indication: CHRONIC LYMPHOCYTIC LEUKAEMIA
     Dosage: 300 MG CYCLIC (300 MILLIGRAM, 1 CYCLICAL, INTRAVENOUS (NOT OTHERWISE SPECIFIED)
     Route: 042
     Dates: start: 20121213

REACTIONS (5)
  - Lung infection [None]
  - Confusional state [None]
  - Somnolence [None]
  - Neutrophil count decreased [None]
  - Blood lactic acid decreased [None]
